FAERS Safety Report 16344949 (Version 1)
Quarter: 2019Q2

REPORT INFORMATION
  Report Type: Spontaneous
  Country: US (occurrence: US)
  Receive Date: 20190522
  Receipt Date: 20190522
  Transmission Date: 20190711
  Serious: No
  Sender: FDA-Public Use
  Company Number: US-JNJFOC-20190444812

PATIENT
  Sex: Female
  Weight: 62.6 kg

DRUGS (3)
  1. XARELTO [Suspect]
     Active Substance: RIVAROXABAN
     Indication: THROMBOSIS
     Route: 048
     Dates: start: 201807, end: 2018
  2. XARELTO [Suspect]
     Active Substance: RIVAROXABAN
     Indication: THROMBOSIS
     Route: 048
     Dates: start: 2018, end: 201901
  3. RELPAX [Concomitant]
     Active Substance: ELETRIPTAN HYDROBROMIDE
     Indication: MIGRAINE
     Dosage: AS NEEDED
     Route: 065
     Dates: start: 2011

REACTIONS (2)
  - Abnormal weight gain [Not Recovered/Not Resolved]
  - Inadequate diet [Unknown]

NARRATIVE: CASE EVENT DATE: 2018
